FAERS Safety Report 4752352-0 (Version None)
Quarter: 2005Q3

REPORT INFORMATION
  Report Type: 
  Country: None (occurrence: None)
  Receive Date: 20050824
  Receipt Date: 20050824
  Transmission Date: 20060218
  Serious: Yes (Life-Threatening)
  Sender: FDA-Public Use
  Company Number: None

PATIENT
  Age: 48 Year
  Sex: Female
  Weight: 79.8 kg

DRUGS (11)
  1. PACLITAXEL INJECTION 300 MG/ 50 ML BEDFORD LABS [Suspect]
     Indication: OVARIAN CANCER
     Dosage: 300 MG ONCE IV DRIP
     Route: 041
     Dates: start: 20050705, end: 20050705
  2. PACLITAXEL INJECTION 30 MG/ 5 ML BEDFORD LABS [Suspect]
     Indication: OVARIAN CANCER
     Dosage: 25 MG ONCE IV DRIP
     Route: 041
     Dates: start: 20050705, end: 20050705
  3. PROVENTIL [Concomitant]
  4. PERCOCET [Concomitant]
  5. PROTONIX [Concomitant]
  6. COUMADIN [Concomitant]
  7. BENADRYL [Concomitant]
  8. DECADRON [Concomitant]
  9. COMPAZINE [Concomitant]
  10. ZANTAC [Concomitant]
  11. ATIVAN [Concomitant]

REACTIONS (7)
  - CHEST DISCOMFORT [None]
  - DYSPNOEA [None]
  - HEART RATE INCREASED [None]
  - INFUSION RELATED REACTION [None]
  - OXYGEN SATURATION DECREASED [None]
  - PARAESTHESIA [None]
  - PHARMACEUTICAL PRODUCT COMPLAINT [None]
